FAERS Safety Report 5639368-7 (Version None)
Quarter: 2008Q1

REPORT INFORMATION
  Report Type: 
  Country: None (occurrence: None)
  Receive Date: 20080226
  Receipt Date: 20080215
  Transmission Date: 20080703
  Serious: Yes (Other)
  Sender: FDA-Public Use
  Company Number: JP-PFIZER INC-2007103884

PATIENT
  Sex: Female
  Weight: 49.1 kg

DRUGS (7)
  1. NORVASC [Suspect]
     Indication: HYPERTENSION
     Route: 048
     Dates: start: 19970318, end: 20071108
  2. NORVASC [Suspect]
     Indication: ANGINA UNSTABLE
  3. DILTIAZEM HCL [Suspect]
     Indication: ANGINA PECTORIS
     Route: 048
     Dates: start: 20071109, end: 20071207
  4. TRICHLORMETHIAZIDE [Concomitant]
     Indication: HYPERTENSION
     Dosage: DAILY DOSE:1MG
     Route: 048
  5. BLOPRESS [Concomitant]
     Indication: HYPERTENSION
     Dosage: DAILY DOSE:12MG
     Route: 048
  6. FAMOTIDINE [Concomitant]
     Route: 048
  7. GASTROM [Concomitant]
     Route: 048

REACTIONS (3)
  - ANGINA PECTORIS [None]
  - GINGIVAL HYPERPLASIA [None]
  - PERIODONTAL DISEASE [None]
